FAERS Safety Report 8055458-6 (Version None)
Quarter: 2011Q4

REPORT INFORMATION
  Report Type: 
  Country: None (occurrence: None)
  Receive Date: 20111219
  Receipt Date: 20110406
  Transmission Date: 20120403
  Serious: Yes (Other)
  Sender: FDA-Public Use
  Company Number: WAES 1104USA00711

PATIENT
  Age: 76 Year
  Sex: Female

DRUGS (5)
  1. JANUVIA [Suspect]
     Indication: PRODUCT USED FOR UNKNOWN INDICATION
     Dosage: PO
     Route: 048
  2. AMLODIPINE [Concomitant]
  3. ZOCOR [Suspect]
     Indication: PRODUCT USED FOR UNKNOWN INDICATION
     Dosage: PO
     Route: 048
  4. LORTAB [Concomitant]
  5. COREG [Concomitant]

REACTIONS (1)
  - PANCREATITIS [None]
